FAERS Safety Report 17548861 (Version 1)
Quarter: 2020Q1

REPORT INFORMATION
  Report Type: Spontaneous
  Country: US (occurrence: US)
  Receive Date: 20200317
  Receipt Date: 20200317
  Transmission Date: 20200409
  Serious: No
  Sender: FDA-Public Use
  Company Number: US-GILEAD-2020-0454915

PATIENT
  Sex: Female

DRUGS (3)
  1. VIVITROL [Concomitant]
     Active Substance: NALTREXONE
  2. MAVYRET [Concomitant]
     Active Substance: GLECAPREVIR\PIBRENTASVIR
  3. SOFOSBUVIR;VELPATASVIR [Suspect]
     Active Substance: SOFOSBUVIR\VELPATASVIR
     Indication: CHRONIC HEPATITIS C
     Dosage: 1 DOSAGE FORM, QD
     Route: 048

REACTIONS (1)
  - Product dose omission [Unknown]
